FAERS Safety Report 21625362 (Version 2)
Quarter: 2022Q4

REPORT INFORMATION
  Report Type: Report from Study
  Country: US (occurrence: US)
  Receive Date: 20221122
  Receipt Date: 20221221
  Transmission Date: 20230113
  Serious: No
  Sender: FDA-Public Use
  Company Number: US-ABBVIE-4207811

PATIENT
  Sex: Male

DRUGS (1)
  1. VENCLEXTA [Suspect]
     Active Substance: VENETOCLAX
     Indication: Chronic myelomonocytic leukaemia
     Dosage: TAKE 2 TABLET(S) BY MOUTH ONCE A DAY, FORM STRENGTH 100 MILLIGRAM
     Route: 048

REACTIONS (2)
  - Off label use [Unknown]
  - Asthenia [Unknown]
